FAERS Safety Report 7299903-2 (Version None)
Quarter: 2011Q1

REPORT INFORMATION
  Report Type: 
  Country: None (occurrence: None)
  Receive Date: 20110208
  Receipt Date: 20110124
  Transmission Date: 20110831
  Serious: Yes (Other)
  Sender: FDA-Public Use
  Company Number: 2011-00130

PATIENT
  Age: 50 Year
  Sex: Female

DRUGS (7)
  1. AMLODIPINE [Concomitant]
  2. RAMIPRIL [Concomitant]
  3. SALBUTAMOL, SALBUTAMOL BASE, SALBUTAMOL SULPHATE, SALBUTAMOL SULPHATE [Concomitant]
  4. METFORMIN HCL [Concomitant]
  5. FLUTICASONE PROPIONATE MICRONISED, SALMETEROL XINAFOATE MICRONISED (SE [Concomitant]
  6. SIMVASTATIN [Suspect]
     Indication: DIABETES MELLITUS
     Dosage: 40 MG (40 MG, 1 IN 1 D),
     Dates: start: 20101008, end: 20101104
  7. BENDROFLUMETHIAZIDE (UNKNOWN) [Concomitant]

REACTIONS (1)
  - VISUAL ACUITY REDUCED [None]
